FAERS Safety Report 17154518 (Version 4)
Quarter: 2020Q1

REPORT INFORMATION
  Report Type: Report from Study
  Country: US (occurrence: US)
  Receive Date: 20191213
  Receipt Date: 20200129
  Transmission Date: 20200409
  Serious: Yes (Other)
  Sender: FDA-Public Use
  Company Number: NVSC2019US010012

PATIENT
  Sex: Female

DRUGS (2)
  1. PIQRAY [Suspect]
     Active Substance: ALPELISIB
     Indication: PRODUCT USED FOR UNKNOWN INDICATION
     Route: 048
  2. PIQRAY [Suspect]
     Active Substance: ALPELISIB
     Route: 048

REACTIONS (9)
  - Metastases to bone [Unknown]
  - Weight decreased [Unknown]
  - Thirst [Unknown]
  - Foot fracture [Unknown]
  - Blood glucose increased [Recovering/Resolving]
  - Dry mouth [Unknown]
  - Pulmonary mass [Unknown]
  - Decreased appetite [Unknown]
  - Fatigue [Unknown]
